FAERS Safety Report 6016948-0 (Version None)
Quarter: 2008Q4

REPORT INFORMATION
  Report Type: 
  Country: None (occurrence: None)
  Receive Date: 20081219
  Receipt Date: 20081210
  Transmission Date: 20090506
  Serious: Yes (Hospitalization)
  Sender: FDA-Public Use
  Company Number: PAR_02475_2008

PATIENT
  Age: 80 Year
  Sex: Female

DRUGS (2)
  1. MEGESTROL ACETATE [Suspect]
     Indication: ANOREXIA
     Dosage: (400 MG)
  2. MEGESTROL ACETATE [Suspect]
     Indication: MALNUTRITION
     Dosage: (400 MG)

REACTIONS (4)
  - ADRENAL INSUFFICIENCY [None]
  - HYPOTENSION [None]
  - RESPIRATORY ACIDOSIS [None]
  - SINUS TACHYCARDIA [None]
